FAERS Safety Report 18107957 (Version 3)
Quarter: 2020Q3

REPORT INFORMATION
  Report Type: Other
  Country: PK (occurrence: PK)
  Receive Date: 20200804
  Receipt Date: 20200810
  Transmission Date: 20201103
  Serious: No
  Sender: FDA-Public Use
  Company Number: PK-ROCHE-2650238

PATIENT

DRUGS (3)
  1. METHOTREXATE. [Concomitant]
     Active Substance: METHOTREXATE
  2. PREDNISOLONE. [Concomitant]
     Active Substance: PREDNISOLONE
  3. TOCILIZUMAB. [Suspect]
     Active Substance: TOCILIZUMAB
     Indication: RHEUMATOID ARTHRITIS
     Route: 042

REACTIONS (8)
  - Upper respiratory tract infection [Unknown]
  - Anaemia [Unknown]
  - Gastritis [Unknown]
  - Headache [Unknown]
  - Mouth ulceration [Unknown]
  - Hypersensitivity [Unknown]
  - Diarrhoea [Unknown]
  - Leukopenia [Unknown]
